FAERS Safety Report 8411304-X (Version None)
Quarter: 2012Q2

REPORT INFORMATION
  Report Type: 
  Country: None (occurrence: None)
  Receive Date: 20120605
  Receipt Date: 20120525
  Transmission Date: 20120825
  Serious: Yes (Death)
  Sender: FDA-Public Use
  Company Number: US-PFIZER INC-2012130307

PATIENT
  Sex: Male

DRUGS (2)
  1. VFEND [Suspect]
     Indication: CANDIDA PNEUMONIA
  2. VFEND [Suspect]
     Indication: RESPIRATORY MONILIASIS
     Dosage: 200 MG, 2X/DAY

REACTIONS (1)
  - DEATH [None]
